FAERS Safety Report 9325586 (Version 1)
Quarter: 2013Q2

REPORT INFORMATION
  Report Type: Report from Study
  Country: BR (occurrence: BR)
  Receive Date: 20130604
  Receipt Date: 20130604
  Transmission Date: 20140414
  Serious: Yes (Other)
  Sender: FDA-Public Use
  Company Number: PHHY2013BR055920

PATIENT
  Sex: Female

DRUGS (1)
  1. FORASEQ [Suspect]
     Dosage: UNK UKN, UNK

REACTIONS (1)
  - Drug dependence [Unknown]
